FAERS Safety Report 5315237-7 (Version None)
Quarter: 2007Q2

REPORT INFORMATION
  Report Type: 
  Country: None (occurrence: None)
  Receive Date: 20070427
  Receipt Date: 20070412
  Transmission Date: 20071010
  Serious: Yes (Other)
  Sender: FDA-Public Use
  Company Number: 8023000

PATIENT
  Sex: Female

DRUGS (2)
  1. KEPPRA [Suspect]
  2. ECOTRIN [Suspect]

REACTIONS (2)
  - ANAL HAEMORRHAGE [None]
  - DRUG INTERACTION [None]
